FAERS Safety Report 8261938-0 (Version None)
Quarter: 2012Q2

REPORT INFORMATION
  Report Type: 
  Country: None (occurrence: None)
  Receive Date: 20120405
  Receipt Date: 20120402
  Transmission Date: 20120825
  Serious: Yes (Other)
  Sender: FDA-Public Use
  Company Number: CA-SANOFI-AVENTIS-2012SA023306

PATIENT
  Age: 19 Year
  Sex: Female

DRUGS (3)
  1. CIPROFLOXACIN [Suspect]
     Route: 065
  2. METRONIDAZOLE [Suspect]
     Route: 065
  3. DOMPERIDONE [Suspect]
     Route: 065

REACTIONS (1)
  - ELECTROCARDIOGRAM QT PROLONGED [None]
